FAERS Safety Report 5296931-3 (Version None)
Quarter: 2007Q1

REPORT INFORMATION
  Report Type: 
  Country: None (occurrence: None)
  Receive Date: 20070201
  Receipt Date: 20061005
  Transmission Date: 20070707
  Serious: No
  Sender: FDA-Public Use
  Company Number: 2006PV022600

PATIENT
  Age: 62 Year
  Sex: Female
  Weight: 100.0181 kg

DRUGS (6)
  1. BYETTA [Suspect]
     Indication: DIABETES MELLITUS NON-INSULIN-DEPENDENT
     Dosage: SEE IMAGE
     Route: 058
     Dates: start: 20060801, end: 20060927
  2. BYETTA [Suspect]
     Indication: DIABETES MELLITUS NON-INSULIN-DEPENDENT
     Dosage: SEE IMAGE
     Route: 058
     Dates: start: 20060928
  3. NOVOLIN 70/30 [Concomitant]
  4. MEDROL [Concomitant]
  5. PRILOSEC [Concomitant]
  6. PREVACID [Concomitant]

REACTIONS (4)
  - CONDITION AGGRAVATED [None]
  - FEELING JITTERY [None]
  - NAUSEA [None]
  - WEIGHT DECREASED [None]
